FAERS Safety Report 19224795 (Version 1)
Quarter: 2021Q2

REPORT INFORMATION
  Report Type: Spontaneous
  Country: US (occurrence: US)
  Receive Date: 20210505
  Receipt Date: 20210505
  Transmission Date: 20210717
  Serious: No
  Sender: FDA-Public Use
  Company Number: US-ASTRAZENECA-2021A306599

PATIENT
  Sex: Female
  Weight: 81.6 kg

DRUGS (2)
  1. BYDUREON BCISE [Suspect]
     Active Substance: EXENATIDE
     Indication: DIABETES MELLITUS
     Route: 058
     Dates: start: 201502
  2. BYDUREON [Suspect]
     Active Substance: EXENATIDE
     Route: 065
     Dates: start: 2005

REACTIONS (6)
  - Arthritis [Unknown]
  - Back pain [Unknown]
  - Injection site haemorrhage [Unknown]
  - Device malfunction [Unknown]
  - Amnesia [Unknown]
  - Intentional device misuse [Unknown]
